FAERS Safety Report 19922827 (Version 2)
Quarter: 2023Q4

REPORT INFORMATION
  Report Type: Spontaneous
  Country: US (occurrence: US)
  Receive Date: 20211005
  Receipt Date: 20231027
  Transmission Date: 20240109
  Serious: No
  Sender: FDA-Public Use
  Company Number: US-AVEO ONCOLOGY-2021-AVEO-US003481

PATIENT

DRUGS (1)
  1. FOTIVDA [Suspect]
     Active Substance: TIVOZANIB HYDROCHLORIDE
     Indication: Renal cell carcinoma
     Dosage: 1.34 MG, DAILY FOR 21 DAYS THEN 7 DAYS OFF
     Route: 048

REACTIONS (7)
  - Fatigue [Recovered/Resolved]
  - Decreased appetite [Unknown]
  - Polydipsia [Unknown]
  - Rash [Unknown]
  - Peripheral swelling [Unknown]
  - Dry skin [Unknown]
  - Dyspepsia [Unknown]
